FAERS Safety Report 11336198 (Version 1)
Quarter: 2015Q3

REPORT INFORMATION
  Report Type: Spontaneous
  Country: NZ (occurrence: NZ)
  Receive Date: 20150804
  Receipt Date: 20150804
  Transmission Date: 20151125
  Serious: Yes (Hospitalization)
  Sender: FDA-Public Use
  Company Number: NZ-PFIZER INC-2015165435

PATIENT
  Age: 63 Year
  Sex: Male

DRUGS (3)
  1. EFFEXOR XR [Suspect]
     Active Substance: VENLAFAXINE HYDROCHLORIDE
     Dosage: 75 MG, DAILY
     Dates: start: 2015, end: 2015
  2. EFFEXOR XR [Suspect]
     Active Substance: VENLAFAXINE HYDROCHLORIDE
     Dosage: 37.5 MG, DAILY
     Dates: start: 2015
  3. EFFEXOR XR [Suspect]
     Active Substance: VENLAFAXINE HYDROCHLORIDE
     Indication: DEPRESSION
     Dosage: 37.5 MG, DAILY
     Dates: start: 20150401, end: 2015

REACTIONS (4)
  - Activities of daily living impaired [Not Recovered/Not Resolved]
  - Drug intolerance [Recovering/Resolving]
  - Disturbance in attention [Not Recovered/Not Resolved]
  - Feeling abnormal [Recovering/Resolving]

NARRATIVE: CASE EVENT DATE: 2015
